FAERS Safety Report 5488220-9 (Version None)
Quarter: 2007Q3

REPORT INFORMATION
  Report Type: 
  Country: None (occurrence: None)
  Receive Date: 20070926
  Receipt Date: 20070807
  Transmission Date: 20080115
  Serious: No
  Sender: FDA-Public Use
  Company Number: HQWYE463408AUG07

PATIENT
  Age: 57 Year
  Sex: Male

DRUGS (5)
  1. TORISEL [Suspect]
     Indication: RENAL CELL CARCINOMA STAGE UNSPECIFIED
     Dosage: 25 MG 1X PER 1 WK, INTRAVENOUS
     Route: 042
     Dates: start: 20070724
  2. CLOPIDOGREL [Concomitant]
  3. DOXAZOSIN MESYLATE [Concomitant]
  4. SYNVINOLIN (SIMVASTATIN) [Concomitant]
  5. FELODIPINE [Concomitant]

REACTIONS (1)
  - BLOOD CREATININE INCREASED [None]
